FAERS Safety Report 9701393 (Version 1)
Quarter: 2013Q4

REPORT INFORMATION
  Report Type: Spontaneous
  Country: US (occurrence: US)
  Receive Date: 20131121
  Receipt Date: 20131121
  Transmission Date: 20140711
  Serious: No
  Sender: FDA-Public Use
  Company Number: US-GILEAD-2008-0016689

PATIENT
  Age: 67 Year
  Sex: Male
  Weight: 106.14 kg

DRUGS (8)
  1. LETAIRIS [Suspect]
     Indication: PULMONARY ARTERIAL HYPERTENSION
     Route: 048
     Dates: start: 20080514
  2. AMLODIPINE [Concomitant]
     Route: 048
  3. SIMVASTATIN [Concomitant]
     Route: 048
  4. WARFARIN [Concomitant]
     Route: 048
  5. WARFARIN [Concomitant]
     Route: 048
  6. CALCIUM + D [Concomitant]
     Route: 048
  7. ACID REDUCER [Concomitant]
     Route: 048
  8. GARLIC [Concomitant]
     Route: 048

REACTIONS (4)
  - Upper respiratory tract congestion [Recovered/Resolved]
  - Cough [Recovered/Resolved]
  - Nasal congestion [Recovered/Resolved]
  - Flushing [Recovered/Resolved]
